FAERS Safety Report 9687914 (Version 1)
Quarter: 2013Q4

REPORT INFORMATION
  Report Type: Spontaneous
  Country: US (occurrence: US)
  Receive Date: 20131114
  Receipt Date: 20131114
  Transmission Date: 20140711
  Serious: Yes (Other)
  Sender: FDA-Public Use
  Company Number: US-BAYER-2013-138567

PATIENT
  Sex: Female

DRUGS (2)
  1. YAZ [Suspect]
     Dosage: UNK
     Dates: start: 200712
  2. YASMIN [Suspect]
     Dosage: UNK
     Dates: start: 200712

REACTIONS (5)
  - Deep vein thrombosis [None]
  - Pain [None]
  - Fear of disease [None]
  - Injury [None]
  - Pain [None]
